FAERS Safety Report 9916890 (Version 4)
Quarter: 2014Q2

REPORT INFORMATION
  Report Type: Spontaneous
  Country: DE (occurrence: DE)
  Receive Date: 20140221
  Receipt Date: 20140404
  Transmission Date: 20141212
  Serious: Yes (Death, Hospitalization, Other)
  Sender: FDA-Public Use
  Company Number: DE-ELI_LILLY_AND_COMPANY-DE201402005490

PATIENT
  Sex: Female

DRUGS (12)
  1. ZYPREXA [Suspect]
     Indication: DEMENTIA
     Dosage: 5 MG, QD
     Route: 065
     Dates: start: 20111029, end: 20111213
  2. ZYPREXA [Suspect]
     Indication: PARANOIA
     Dosage: 5 MG, UNKNOWN
     Route: 048
     Dates: start: 20120109, end: 20120423
  3. ZYPREXA [Suspect]
     Dosage: 5 MG, UNKNOWN
     Route: 048
     Dates: start: 20120517, end: 20130715
  4. RISPERDAL [Suspect]
     Indication: PARANOIA
     Dosage: 3 MG, QD
     Route: 065
     Dates: start: 201110
  5. RISPERDAL [Suspect]
     Indication: HALLUCINATION
     Dosage: 1 MG, UNKNOWN
     Route: 065
     Dates: start: 20120109
  6. RISPERDAL [Suspect]
     Dosage: 1 MG, UNKNOWN
     Route: 065
     Dates: start: 20120517
  7. DIAZEPAM [Suspect]
     Indication: SEDATION
     Dosage: 15 GTT, TID
     Route: 065
  8. DIAZEPAM [Suspect]
     Dosage: 15 GTT, UNKNOWN
     Route: 065
     Dates: start: 20120109
  9. DIAZEPAM [Suspect]
     Dosage: 15 GTT, UNKNOWN
     Route: 065
     Dates: start: 20120517
  10. VALDOXAN [Suspect]
     Indication: RESTLESSNESS
     Dosage: 25 MG, EACH EVENING
     Route: 065
     Dates: start: 201111
  11. VALDOXAN [Suspect]
     Indication: DEMENTIA
     Dosage: 25 MG, UNKNOWN
     Route: 065
     Dates: start: 20120109
  12. VALDOXAN [Suspect]
     Dosage: 25 MG, UNKNOWN
     Route: 065
     Dates: start: 20120517

REACTIONS (16)
  - Death [Fatal]
  - Craniocerebral injury [Unknown]
  - Aphagia [Recovered/Resolved]
  - Decreased activity [Recovered/Resolved]
  - Drooling [Unknown]
  - Aphasia [Recovered/Resolved]
  - Abasia [Unknown]
  - Fall [Unknown]
  - Dementia [Unknown]
  - Abscess [Unknown]
  - Myocarditis [Unknown]
  - Cystitis [Unknown]
  - Body temperature increased [Unknown]
  - Apathy [Unknown]
  - Parkinson^s disease [Unknown]
  - Dizziness [Unknown]
